FAERS Safety Report 6702878-5 (Version None)
Quarter: 2010Q2

REPORT INFORMATION
  Report Type: 
  Country: None (occurrence: None)
  Receive Date: 20100429
  Receipt Date: 20100429
  Transmission Date: 20101027
  Serious: Yes (Other)
  Sender: FDA-Public Use
  Company Number: None

PATIENT
  Age: 88 Year
  Sex: Female

DRUGS (1)
  1. ZOLPIDEM [Suspect]
     Indication: INSOMNIA
     Dosage: 1/2 TO 1 TABLET AT BEDTIME, 2 WKS OF THIS NEW BRAND

REACTIONS (2)
  - INSOMNIA [None]
  - THERAPEUTIC RESPONSE DECREASED [None]
